FAERS Safety Report 13515282 (Version 1)
Quarter: 2017Q2

REPORT INFORMATION
  Report Type: Spontaneous
  Country: US (occurrence: US)
  Receive Date: 20170504
  Receipt Date: 20170504
  Transmission Date: 20170830
  Serious: No
  Sender: FDA-Public Use
  Company Number: US-BRISTOL-MYERS SQUIBB COMPANY-BMS-2017-035238

PATIENT
  Sex: Male

DRUGS (1)
  1. ENTECAVIR. [Suspect]
     Active Substance: ENTECAVIR
     Indication: PRODUCT USED FOR UNKNOWN INDICATION
     Dosage: 0.5 MG, UNK
     Route: 065
     Dates: start: 2007, end: 201701

REACTIONS (8)
  - Flushing [Unknown]
  - Infection [Unknown]
  - Abdominal pain upper [Unknown]
  - Balance disorder [Unknown]
  - Arthralgia [Unknown]
  - Alopecia [Unknown]
  - Rash pruritic [Unknown]
  - Headache [Unknown]
